FAERS Safety Report 4378517-8 (Version None)
Quarter: 2004Q2

REPORT INFORMATION
  Report Type: 
  Country: None (occurrence: None)
  Receive Date: 20040609
  Receipt Date: 20040528
  Transmission Date: 20050107
  Serious: Yes (Hospitalization, Disabling)
  Sender: FDA-Public Use
  Company Number: NO-JNJFOC-20040600008

PATIENT
  Age: 66 Year
  Sex: Male

DRUGS (3)
  1. REMICADE (INFLIXIMAB, RECOMBINANT) LYOPHILIZED POWDER [Suspect]
     Indication: COLITIS ULCERATIVE
     Dosage: 400 MG, 1 IN 1 DAY, INTRAVENOUS
     Route: 042
     Dates: start: 20040404, end: 20040404
  2. AZATHIOPRINE [Concomitant]
  3. PREDNISOLONE [Concomitant]

REACTIONS (4)
  - CEREBELLAR INFARCTION [None]
  - HEADACHE [None]
  - NEUROLOGICAL INFECTION [None]
  - SOMNOLENCE [None]
